FAERS Safety Report 25077439 (Version 1)
Quarter: 2025Q1

REPORT INFORMATION
  Report Type: Report from Study
  Country: BR (occurrence: BR)
  Receive Date: 20250314
  Receipt Date: 20250314
  Transmission Date: 20250409
  Serious: Yes (Hospitalization, Other)
  Sender: ALEXION PHARMACEUTICALS
  Company Number: BR-AstraZeneca-CH-00821726A

PATIENT
  Age: 80 Year
  Weight: 35 kg

DRUGS (1)
  1. TEZEPELUMAB [Suspect]
     Active Substance: TEZEPELUMAB
     Indication: Asthma

REACTIONS (7)
  - Seizure [Unknown]
  - Fatigue [Not Recovered/Not Resolved]
  - Asthenia [Unknown]
  - Respiration abnormal [Unknown]
  - Malaise [Unknown]
  - Product administration error [Unknown]
  - Incorrect route of product administration [Unknown]
